FAERS Safety Report 8546591 (Version 3)
Quarter: 2012Q4

REPORT INFORMATION
  Report Type: 
  Country: JP (occurrence: JP)
  Receive Date: 20120504
  Receipt Date: 20121017
  Transmission Date: 20130627
  Serious: Yes (Other)
  Sender: FDA-Public Use
  Company Number: JP-JNJFOC-20120501838

PATIENT
  Sex: Female

DRUGS (1)
  1. TRAMCET [Suspect]
     Indication: PAIN
     Dosage: 4 tablets per day 4 times daily
     Route: 048
     Dates: end: 20120421

REACTIONS (2)
  - Tinnitus [Unknown]
  - Photophobia [Unknown]
